FAERS Safety Report 10409617 (Version 1)
Quarter: 2014Q2

REPORT INFORMATION
  Report Type: Spontaneous
  Country: US (occurrence: None)
  Receive Date: 20140604
  Receipt Date: 20140604
  Transmission Date: 20141212
  Serious: No
  Sender: FDA-Public Use
  Company Number: 163-POMAL-14050846

PATIENT
  Age: 56 Year
  Sex: Male
  Weight: 77.1 kg

DRUGS (9)
  1. POMALYST (POMALIDOMIDE) (2 MILLIGRAM, CAPSULES) [Suspect]
     Indication: PLASMA CELL MYELOMA
     Route: 048
     Dates: start: 20140201
  2. AMLODIPINE [Concomitant]
  3. DEXAMETHASONE [Concomitant]
  4. GEMFIBROZIL [Concomitant]
  5. LORAZEPAM [Concomitant]
  6. LISINOPRIL [Concomitant]
  7. FLONASE (FLUTICASONE PROPIONATE) [Concomitant]
  8. SLO-NIACIN (NICOTINIC ACID) [Concomitant]
  9. DOCUSATE [Concomitant]

REACTIONS (1)
  - Laboratory test abnormal [None]
